FAERS Safety Report 14022337 (Version 2)
Quarter: 2017Q4

REPORT INFORMATION
  Report Type: Spontaneous
  Country: US (occurrence: US)
  Receive Date: 20170928
  Receipt Date: 20171010
  Transmission Date: 20180321
  Serious: Yes (Life-Threatening, Disabling, Other)
  Sender: FDA-Public Use
  Company Number: US-009507513-1709USA010067

PATIENT
  Age: 37 Year
  Sex: Female

DRUGS (9)
  1. M-M-R II [Suspect]
     Active Substance: MEASLES VIRUS STRAIN ENDERS^ ATTENUATED EDMONSTON LIVE ANTIGEN\MUMPS VIRUS STRAIN B LEVEL JERYL LYNN LIVE ANTIGEN\RUBELLA VIRUS STRAIN WISTAR RA 27/3 LIVE ANTIGEN
     Indication: PROPHYLAXIS
     Route: 030
     Dates: start: 20170726, end: 20170726
  2. SINGULAIR [Concomitant]
     Active Substance: MONTELUKAST SODIUM
  3. PEPCID [Concomitant]
     Active Substance: FAMOTIDINE
  4. ZYRTEC [Concomitant]
     Active Substance: CETIRIZINE HYDROCHLORIDE
  5. BENADRYL [Concomitant]
     Active Substance: DIPHENHYDRAMINE HYDROCHLORIDE
  6. ALLEGRA [Concomitant]
     Active Substance: FEXOFENADINE HYDROCHLORIDE
  7. PREDNISONE. [Concomitant]
     Active Substance: PREDNISONE
  8. STERILE DILUENT [Concomitant]
     Active Substance: WATER
     Indication: PROPHYLAXIS
     Dosage: UNK
     Route: 030
     Dates: start: 20170726
  9. HYDRALAZINE [Concomitant]
     Active Substance: HYDRALAZINE HYDROCHLORIDE

REACTIONS (27)
  - Systemic mastocytosis [Not Recovered/Not Resolved]
  - Syncope [Unknown]
  - Wound [Not Recovered/Not Resolved]
  - Flushing [Unknown]
  - Urticaria pigmentosa [Unknown]
  - Allergy to chemicals [Unknown]
  - Arthralgia [Unknown]
  - Pyrexia [Recovering/Resolving]
  - Fatigue [Unknown]
  - Dysstasia [Unknown]
  - Feeling abnormal [Unknown]
  - Blister [Unknown]
  - Dizziness [Unknown]
  - Dyspnoea [Recovered/Resolved]
  - Urticaria [Unknown]
  - Pharyngeal oedema [Recovered/Resolved]
  - Blood pressure fluctuation [Unknown]
  - Rash [Unknown]
  - Rubella antibody negative [Recovered/Resolved]
  - Lymphadenopathy [Recovering/Resolving]
  - Psychiatric symptom [Unknown]
  - Infectious mononucleosis [Not Recovered/Not Resolved]
  - Cellulitis [Recovering/Resolving]
  - Chills [Unknown]
  - Pain [Unknown]
  - Headache [Unknown]
  - Oropharyngeal pain [Unknown]

NARRATIVE: CASE EVENT DATE: 20150609
